FAERS Safety Report 19082804 (Version 1)
Quarter: 2021Q2

REPORT INFORMATION
  Report Type: Spontaneous
  Country: US (occurrence: US)
  Receive Date: 20210401
  Receipt Date: 20210401
  Transmission Date: 20210717
  Serious: Yes (Other)
  Sender: FDA-Public Use
  Company Number: None

PATIENT
  Age: 41 Year
  Sex: Female
  Weight: 92.25 kg

DRUGS (3)
  1. FLONASE [Concomitant]
     Active Substance: FLUTICASONE PROPIONATE
  2. ZYRTEC [Concomitant]
     Active Substance: CETIRIZINE HYDROCHLORIDE
  3. DURISAN HAND SANITIZER [Suspect]
     Active Substance: BENZALKONIUM CHLORIDE
     Indication: COVID-19 PROPHYLAXIS
     Route: 061

REACTIONS (4)
  - Recalled product [None]
  - Upper respiratory tract infection [None]
  - Skin infection [None]
  - Product contamination [None]

NARRATIVE: CASE EVENT DATE: 20200715
